FAERS Safety Report 15205157 (Version 7)
Quarter: 2018Q4

REPORT INFORMATION
  Report Type: Report from Study
  Country: US (occurrence: US)
  Receive Date: 20180726
  Receipt Date: 20181206
  Transmission Date: 20190204
  Serious: Yes (Life-Threatening, Hospitalization, Other)
  Sender: FDA-Public Use
  Company Number: US-EXELIXIS-XL18418015020

PATIENT
  Age: 68 Year
  Sex: Male
  Weight: 174.4 kg

DRUGS (12)
  1. XL184 [Suspect]
     Active Substance: CABOZANTINIB
     Indication: TRANSITIONAL CELL CARCINOMA METASTATIC
     Dosage: 40 MG, QD
     Route: 048
     Dates: start: 20180611, end: 20180702
  2. NIVOLUMAB [Suspect]
     Active Substance: NIVOLUMAB
     Indication: TRANSITIONAL CELL CARCINOMA METASTATIC
     Dosage: 3 MG/KG, (TOTAL DOSE ADMINISTERED OF 275 MG)
     Route: 042
     Dates: start: 20180611, end: 20180704
  3. ALLOPURINOL. [Suspect]
     Active Substance: ALLOPURINOL
     Indication: PRODUCT USED FOR UNKNOWN INDICATION
     Route: 065
  4. METOPROLOL. [Concomitant]
     Active Substance: METOPROLOL
     Indication: PRODUCT USED FOR UNKNOWN INDICATION
     Route: 065
  5. NIVOLUMAB [Suspect]
     Active Substance: NIVOLUMAB
     Dosage: UNK
     Dates: start: 20180806
  6. ALLOPURINOL. [Suspect]
     Active Substance: ALLOPURINOL
     Route: 065
  7. COLCHICINE. [Concomitant]
     Active Substance: COLCHICINE
     Indication: PRODUCT USED FOR UNKNOWN INDICATION
     Route: 065
  8. METOPROLOL. [Concomitant]
     Active Substance: METOPROLOL
     Route: 065
  9. PRILOSEC [Concomitant]
     Active Substance: OMEPRAZOLE MAGNESIUM
  10. IPILIMUMAB [Suspect]
     Active Substance: IPILIMUMAB
     Indication: TRANSITIONAL CELL CARCINOMA METASTATIC
     Dosage: 1 MG/KG, (TOTAL DOSE ADMINISTERED WAS 91.7 MG)
     Route: 042
     Dates: start: 20180611, end: 20180704
  11. XL184 [Suspect]
     Active Substance: CABOZANTINIB
     Dosage: 20 MG, UNK
     Route: 048
     Dates: start: 20180723
  12. COLCHICINE. [Concomitant]
     Active Substance: COLCHICINE
     Route: 065

REACTIONS (6)
  - Dehydration [Unknown]
  - Neutrophil count decreased [Recovered/Resolved]
  - Platelet count decreased [Unknown]
  - Febrile neutropenia [Unknown]
  - Klebsiella infection [Unknown]
  - Hypotension [Unknown]

NARRATIVE: CASE EVENT DATE: 20180702
